FAERS Safety Report 6767762-X (Version None)
Quarter: 2010Q2

REPORT INFORMATION
  Report Type: 
  Country: None (occurrence: None)
  Receive Date: 20100614
  Receipt Date: 20100601
  Transmission Date: 20101027
  Serious: Yes (Other)
  Sender: FDA-Public Use
  Company Number: PHHY2010FR33477

PATIENT
  Age: 50 Year
  Sex: Male

DRUGS (3)
  1. RASILEZ [Suspect]
     Dosage: 300 MG
     Dates: start: 20100202
  2. RASILEZ [Suspect]
     Dosage: 150 MG
  3. ESCITALOPRAM [Suspect]
     Dosage: UNK
     Dates: start: 20100202, end: 20100401

REACTIONS (3)
  - ACTIVITIES OF DAILY LIVING IMPAIRED [None]
  - ASTHENIA [None]
  - SOMNOLENCE [None]
